FAERS Safety Report 20561060 (Version 1)
Quarter: 2022Q1

REPORT INFORMATION
  Report Type: Spontaneous
  Country: US (occurrence: None)
  Receive Date: 20220305
  Receipt Date: 20220305
  Transmission Date: 20220423
  Serious: Yes (unspecified)
  Sender: FDA-Public Use
  Company Number: None

PATIENT
  Age: 19 Year
  Sex: Male
  Weight: 58.5 kg

DRUGS (9)
  1. LACTULOSE [Suspect]
     Active Substance: LACTULOSE
     Indication: Gastrointestinal bacterial overgrowth
     Dosage: OTHER QUANTITY : 15 TABLESPOON(S);?
     Route: 048
     Dates: start: 20220304, end: 20220304
  2. Hyocyamine [Concomitant]
  3. REMERON [Concomitant]
     Active Substance: MIRTAZAPINE
  4. OMEPRAZOLE [Concomitant]
     Active Substance: OMEPRAZOLE
  5. ONDANSETRON [Concomitant]
     Active Substance: ONDANSETRON
  6. REGLAN [Concomitant]
     Active Substance: METOCLOPRAMIDE HYDROCHLORIDE
  7. TUMS [Concomitant]
     Active Substance: CALCIUM CARBONATE
  8. peppermint capsules [Concomitant]
  9. ADVIL [Concomitant]
     Active Substance: IBUPROFEN

REACTIONS (2)
  - Muscle spasms [None]
  - Rectal haemorrhage [None]

NARRATIVE: CASE EVENT DATE: 20220304
